FAERS Safety Report 7483401-7 (Version None)
Quarter: 2011Q2

REPORT INFORMATION
  Report Type: 
  Country: None (occurrence: None)
  Receive Date: 20110517
  Receipt Date: 20110505
  Transmission Date: 20111010
  Serious: Yes (Hospitalization)
  Sender: FDA-Public Use
  Company Number: CA-JNJFOC-20110503953

PATIENT
  Sex: Male
  Weight: 84 kg

DRUGS (21)
  1. NITROGLYCERIN [Concomitant]
     Indication: ANGINA PECTORIS
     Route: 062
     Dates: start: 20050101
  2. EFFEXOR [Concomitant]
     Route: 048
     Dates: start: 20091027
  3. ABIRATERONE ACETATE [Suspect]
     Indication: PROSTATE CANCER METASTATIC
     Route: 048
     Dates: start: 20110125
  4. PREDNISONE [Suspect]
     Indication: PROSTATE CANCER METASTATIC
     Route: 048
     Dates: start: 20080902
  5. PREDNISONE [Suspect]
     Route: 048
     Dates: start: 20110125
  6. MELOXICAM [Concomitant]
     Indication: ARTHRITIS
     Route: 048
     Dates: start: 20071026
  7. ALBUTEROL SULFATE AUTOHALER [Concomitant]
     Indication: ASTHMA
     Route: 055
     Dates: start: 20080920
  8. ABIRATERONE ACETATE [Suspect]
     Route: 048
     Dates: start: 20080902, end: 20110124
  9. LUPRON [Concomitant]
     Indication: PROSTATE CANCER
     Route: 030
     Dates: start: 20080902
  10. VITAMIN B-12 [Concomitant]
     Indication: VITAMIN B12 DEFICIENCY
     Route: 030
     Dates: start: 19990101
  11. DILTIAZEM [Concomitant]
     Indication: ANGINA PECTORIS
     Route: 048
     Dates: start: 20050107
  12. FLUTICASONE PROPIONATE [Concomitant]
     Indication: ASTHMA
     Route: 055
     Dates: start: 20080920
  13. STATEX [Concomitant]
     Indication: CANCER PAIN
     Route: 048
     Dates: start: 20100301
  14. VITAMIN D [Concomitant]
     Indication: PROPHYLAXIS
     Route: 048
     Dates: start: 20080610
  15. CALCIUM [Concomitant]
     Indication: PROPHYLAXIS
     Route: 048
     Dates: start: 20080610
  16. EFFEXOR [Concomitant]
     Indication: HYPERHIDROSIS
     Route: 048
     Dates: start: 20091027
  17. STATEX [Concomitant]
     Route: 048
     Dates: start: 20090212
  18. MORPHINE [Concomitant]
     Indication: CANCER PAIN
     Route: 048
     Dates: start: 20101004
  19. FOSAMAX [Concomitant]
     Indication: BONE DENSITY ABNORMAL
     Route: 048
     Dates: start: 20101007
  20. FLOMAX [Concomitant]
     Indication: NOCTURIA
     Route: 048
     Dates: start: 20090414
  21. NITROGLYCERIN SPRAY [Concomitant]
     Indication: ANGINA PECTORIS
     Route: 055
     Dates: start: 20050101

REACTIONS (1)
  - CEREBRAL ISCHAEMIA [None]
